FAERS Safety Report 23217573 (Version 5)
Quarter: 2024Q2

REPORT INFORMATION
  Report Type: Spontaneous
  Country: DE (occurrence: DE)
  Receive Date: 20231122
  Receipt Date: 20240426
  Transmission Date: 20240716
  Serious: Yes (Other)
  Sender: FDA-Public Use
  Company Number: DE-SANDOZ-NVSC2023DE139619

PATIENT
  Age: 26 Year
  Sex: Female
  Weight: 47 kg

DRUGS (64)
  1. QUINIDINE SULFATE [Suspect]
     Active Substance: QUINIDINE SULFATE
     Indication: Product used for unknown indication
     Dosage: UNK
     Route: 065
  2. QUINIDINE SULFATE [Suspect]
     Active Substance: QUINIDINE SULFATE
     Indication: Product used for unknown indication
     Dosage: UNK
     Route: 065
  3. QUINIDINE SULFATE [Suspect]
     Active Substance: QUINIDINE SULFATE
     Dosage: UNK
     Route: 065
  4. QUINIDINE SULFATE [Suspect]
     Active Substance: QUINIDINE SULFATE
     Dosage: UNK
     Route: 065
  5. QUINIDINE SULFATE [Suspect]
     Active Substance: QUINIDINE SULFATE
     Dosage: UNK
     Route: 065
  6. QUINIDINE SULFATE [Suspect]
     Active Substance: QUINIDINE SULFATE
     Dosage: UNK
     Route: 065
  7. QUINIDINE SULFATE [Suspect]
     Active Substance: QUINIDINE SULFATE
     Dosage: UNK
     Route: 065
  8. QUINIDINE SULFATE [Suspect]
     Active Substance: QUINIDINE SULFATE
     Dosage: UNK
     Route: 065
  9. QUINIDINE SULFATE [Suspect]
     Active Substance: QUINIDINE SULFATE
     Dosage: UNK
     Route: 065
  10. QUINIDINE SULFATE [Suspect]
     Active Substance: QUINIDINE SULFATE
     Dosage: UNK
     Route: 065
  11. CHLORPROMAZINE [Suspect]
     Active Substance: CHLORPROMAZINE
     Indication: Product used for unknown indication
     Dosage: UNK
     Route: 065
  12. CHLORPROMAZINE [Suspect]
     Active Substance: CHLORPROMAZINE
     Dosage: UNK
     Route: 065
  13. CHLORPROMAZINE [Suspect]
     Active Substance: CHLORPROMAZINE
     Dosage: UNK
     Route: 065
  14. HUMIRA [Suspect]
     Active Substance: ADALIMUMAB
     Indication: Product used for unknown indication
     Dosage: UNK
     Route: 059
     Dates: start: 2010
  15. HUMIRA [Suspect]
     Active Substance: ADALIMUMAB
     Indication: Product used for unknown indication
     Dosage: UNK
     Route: 065
     Dates: start: 2010
  16. HYDRALAZINE [Suspect]
     Active Substance: HYDRALAZINE HYDROCHLORIDE
     Indication: Product used for unknown indication
     Dosage: UNK
     Route: 065
  17. LAMISIL [Suspect]
     Active Substance: TERBINAFINE HYDROCHLORIDE
     Dosage: UNK
     Route: 065
  18. LAMISIL [Suspect]
     Active Substance: TERBINAFINE HYDROCHLORIDE
     Dosage: UNK
     Route: 065
  19. LAMISIL [Suspect]
     Active Substance: TERBINAFINE HYDROCHLORIDE
     Indication: Product used for unknown indication
     Dosage: UNK
     Route: 065
  20. METHYLDOPA [Suspect]
     Active Substance: METHYLDOPA
     Indication: Product used for unknown indication
     Dosage: UNK
     Route: 065
  21. METHYLDOPA [Suspect]
     Active Substance: METHYLDOPA
     Indication: Product used for unknown indication
     Dosage: UNK
     Route: 065
  22. METHYLDOPA [Suspect]
     Active Substance: METHYLDOPA
     Dosage: UNK
     Route: 065
  23. METHYLDOPA [Suspect]
     Active Substance: METHYLDOPA
     Dosage: UNK
     Route: 065
  24. METHYLDOPA [Suspect]
     Active Substance: METHYLDOPA
     Dosage: UNK
     Route: 065
  25. METHYLDOPA [Suspect]
     Active Substance: METHYLDOPA
     Dosage: UNK
     Route: 065
  26. METHYLDOPA [Suspect]
     Active Substance: METHYLDOPA
     Dosage: UNK
     Route: 065
  27. METHYLDOPA [Suspect]
     Active Substance: METHYLDOPA
     Dosage: UNK
     Route: 065
  28. METHYLDOPA [Suspect]
     Active Substance: METHYLDOPA
     Dosage: UNK
     Route: 065
  29. METHYLDOPA [Suspect]
     Active Substance: METHYLDOPA
     Dosage: UNK
     Route: 065
  30. METHYLDOPA [Suspect]
     Active Substance: METHYLDOPA
     Dosage: UNK
     Route: 065
  31. METHYLDOPA [Suspect]
     Active Substance: METHYLDOPA
     Dosage: UNK
     Route: 065
  32. METHYLDOPA [Suspect]
     Active Substance: METHYLDOPA
     Dosage: UNK
     Route: 065
  33. METHYLDOPA [Suspect]
     Active Substance: METHYLDOPA
     Dosage: UNK
     Route: 065
  34. METHYLDOPA [Suspect]
     Active Substance: METHYLDOPA
     Dosage: UNK
     Route: 065
  35. METHYLDOPA [Suspect]
     Active Substance: METHYLDOPA
     Dosage: UNK
     Route: 065
  36. METHYLDOPA [Suspect]
     Active Substance: METHYLDOPA
     Dosage: UNK
     Route: 065
  37. METHYLDOPA [Suspect]
     Active Substance: METHYLDOPA
     Dosage: UNK
     Route: 065
  38. MINOCYCLINE [Suspect]
     Active Substance: MINOCYCLINE HYDROCHLORIDE
     Indication: Product used for unknown indication
     Dosage: UNK
     Route: 065
  39. MINOCYCLINE [Suspect]
     Active Substance: MINOCYCLINE HYDROCHLORIDE
     Dosage: UNK
     Route: 065
  40. PROCAINAMIDE HYDROCHLORIDE [Suspect]
     Active Substance: PROCAINAMIDE HYDROCHLORIDE
     Indication: Product used for unknown indication
     Dosage: UNK
     Route: 065
  41. PROCAINAMIDE HYDROCHLORIDE [Suspect]
     Active Substance: PROCAINAMIDE HYDROCHLORIDE
     Dosage: UNK
     Route: 065
  42. TERBINAFINE [Suspect]
     Active Substance: TERBINAFINE
     Indication: Product used for unknown indication
     Dosage: UNK
     Route: 065
  43. VORICONAZOLE [Suspect]
     Active Substance: VORICONAZOLE
     Indication: Product used for unknown indication
     Dosage: UNK
     Route: 065
  44. VORICONAZOLE [Suspect]
     Active Substance: VORICONAZOLE
     Dosage: UNK
     Route: 065
  45. VORICONAZOLE [Suspect]
     Active Substance: VORICONAZOLE
     Dosage: UNK
     Route: 065
  46. VORICONAZOLE [Suspect]
     Active Substance: VORICONAZOLE
     Dosage: UNK
     Route: 065
  47. VORICONAZOLE [Suspect]
     Active Substance: VORICONAZOLE
     Dosage: UNK
     Route: 065
  48. VORICONAZOLE [Suspect]
     Active Substance: VORICONAZOLE
     Dosage: UNK
     Route: 065
  49. VORICONAZOLE [Suspect]
     Active Substance: VORICONAZOLE
     Dosage: UNK
     Route: 065
  50. VORICONAZOLE [Suspect]
     Active Substance: VORICONAZOLE
     Dosage: UNK
     Route: 065
  51. VORICONAZOLE [Suspect]
     Active Substance: VORICONAZOLE
     Dosage: UNK
     Route: 065
  52. VORICONAZOLE [Suspect]
     Active Substance: VORICONAZOLE
     Dosage: UNK
     Route: 065
  53. HYDROXYCHLOROQUINE SULFATE [Concomitant]
     Active Substance: HYDROXYCHLOROQUINE SULFATE
     Dosage: UNK
     Route: 065
  54. HYDROXYCHLOROQUINE SULFATE [Concomitant]
     Active Substance: HYDROXYCHLOROQUINE SULFATE
     Dosage: UNK
     Route: 065
  55. HYDROXYCHLOROQUINE SULFATE [Concomitant]
     Active Substance: HYDROXYCHLOROQUINE SULFATE
     Dosage: UNK
     Route: 065
  56. HYDROXYCHLOROQUINE SULFATE [Concomitant]
     Active Substance: HYDROXYCHLOROQUINE SULFATE
     Dosage: UNK
     Route: 065
  57. HYDROXYCHLOROQUINE SULFATE [Concomitant]
     Active Substance: HYDROXYCHLOROQUINE SULFATE
     Dosage: UNK
     Route: 065
  58. HYDROXYCHLOROQUINE SULFATE [Concomitant]
     Active Substance: HYDROXYCHLOROQUINE SULFATE
     Dosage: UNK
     Route: 065
  59. HYDROXYCHLOROQUINE SULFATE [Concomitant]
     Active Substance: HYDROXYCHLOROQUINE SULFATE
     Dosage: UNK
     Route: 065
  60. HYDROXYCHLOROQUINE SULFATE [Concomitant]
     Active Substance: HYDROXYCHLOROQUINE SULFATE
     Dosage: UNK
     Route: 065
  61. HYDROXYCHLOROQUINE SULFATE [Concomitant]
     Active Substance: HYDROXYCHLOROQUINE SULFATE
     Dosage: UNK
     Route: 065
  62. HYDROXYCHLOROQUINE SULFATE [Concomitant]
     Active Substance: HYDROXYCHLOROQUINE SULFATE
     Dosage: UNK
     Route: 065
  63. HYDROXYCHLOROQUINE SULFATE [Concomitant]
     Active Substance: HYDROXYCHLOROQUINE SULFATE
     Indication: Product used for unknown indication
     Dosage: UNK
     Route: 065
  64. HYDROXYCHLOROQUINE SULFATE [Concomitant]
     Active Substance: HYDROXYCHLOROQUINE SULFATE
     Dosage: UNK
     Route: 065

REACTIONS (39)
  - Polyserositis [Unknown]
  - Respiratory failure [Unknown]
  - Ovarian failure [Unknown]
  - Lupus-like syndrome [Unknown]
  - Pouchitis [Not Recovered/Not Resolved]
  - Cardiac tamponade [Unknown]
  - Pleural effusion [Unknown]
  - Antiphospholipid syndrome [Unknown]
  - Peritonitis [Unknown]
  - Ascites [Unknown]
  - Systemic lupus erythematosus [Recovering/Resolving]
  - Colitis ulcerative [Recovering/Resolving]
  - Atrial fibrillation [Unknown]
  - Colectomy [Unknown]
  - Intestinal anastomosis [Unknown]
  - Ileostomy closure [Unknown]
  - Proctectomy [Unknown]
  - Ileostomy [Unknown]
  - Ileostomy [Unknown]
  - Proctectomy [Unknown]
  - Premature menopause [Unknown]
  - Infection [Unknown]
  - Photosensitivity reaction [Unknown]
  - Depression [Unknown]
  - Somatic symptom disorder [Unknown]
  - Frequent bowel movements [Not Recovered/Not Resolved]
  - Venous thrombosis limb [Unknown]
  - Arthralgia [Unknown]
  - Pain [Unknown]
  - Fatigue [Unknown]
  - Live birth [Unknown]
  - Myalgia [Unknown]
  - Erythema [Unknown]
  - Gliosis [Unknown]
  - Arthritis [Unknown]
  - Cognitive disorder [Unknown]
  - Normal newborn [Unknown]
  - Intervertebral disc protrusion [Unknown]
  - Maternal exposure during pregnancy [Unknown]

NARRATIVE: CASE EVENT DATE: 20120101
